FAERS Safety Report 10610030 (Version 1)
Quarter: 2014Q4

REPORT INFORMATION
  Report Type: Spontaneous
  Country: US (occurrence: US)
  Receive Date: 20141126
  Receipt Date: 20141126
  Transmission Date: 20150529
  Serious: Yes (Other)
  Sender: FDA-Public Use
  Company Number: US-MALLINCKRODT-T201305148

PATIENT
  Age: 56 Year
  Sex: Female

DRUGS (1)
  1. GABLOFEN [Suspect]
     Active Substance: BACLOFEN
     Indication: MUSCLE SPASTICITY
     Dosage: 114 MCG/DAY (FLEX)
     Route: 037

REACTIONS (4)
  - Body temperature increased [Unknown]
  - Muscle spasticity [Unknown]
  - Urinary tract infection [Unknown]
  - Device failure [Unknown]

NARRATIVE: CASE EVENT DATE: 20130830
